FAERS Safety Report 13412158 (Version 3)
Quarter: 2022Q2

REPORT INFORMATION
  Report Type: Spontaneous
  Country: US (occurrence: US)
  Receive Date: 20170406
  Receipt Date: 20220629
  Transmission Date: 20220720
  Serious: Yes (Other)
  Sender: FDA-Public Use
  Company Number: US-JNJFOC-20170314473

PATIENT
  Age: 10 Year
  Sex: Male

DRUGS (8)
  1. RISPERDAL [Suspect]
     Active Substance: RISPERIDONE
     Indication: Post-traumatic stress disorder
     Route: 048
     Dates: start: 20050116, end: 20060117
  2. RISPERDAL [Suspect]
     Active Substance: RISPERIDONE
     Indication: Anxiety
     Route: 048
     Dates: end: 20151030
  3. RISPERDAL [Suspect]
     Active Substance: RISPERIDONE
     Indication: Attention deficit hyperactivity disorder
     Route: 048
     Dates: end: 20151124
  4. RISPERDAL [Suspect]
     Active Substance: RISPERIDONE
     Indication: Tic
  5. RISPERDAL [Suspect]
     Active Substance: RISPERIDONE
     Indication: Post-traumatic stress disorder
     Dosage: 1 MG/ML
     Route: 048
     Dates: start: 20051118, end: 20081223
  6. RISPERDAL [Suspect]
     Active Substance: RISPERIDONE
     Indication: Anxiety
  7. RISPERDAL [Suspect]
     Active Substance: RISPERIDONE
     Indication: Post-traumatic stress disorder
     Dosage: 1 MG/ML
     Route: 048
     Dates: start: 20090123, end: 20151023
  8. RISPERDAL [Suspect]
     Active Substance: RISPERIDONE
     Indication: Anxiety

REACTIONS (4)
  - Gynaecomastia [Recovering/Resolving]
  - Emotional distress [Unknown]
  - Product use in unapproved indication [Unknown]
  - Off label use [Unknown]

NARRATIVE: CASE EVENT DATE: 20050116
